FAERS Safety Report 19722855 (Version 1)
Quarter: 2021Q3

REPORT INFORMATION
  Report Type: Spontaneous
  Country: DE (occurrence: DE)
  Receive Date: 20210819
  Receipt Date: 20210819
  Transmission Date: 20211014
  Serious: Yes (Hospitalization)
  Sender: FDA-Public Use
  Company Number: DE-TEVA-2021-DE-1942382

PATIENT
  Age: 74 Year
  Sex: Male

DRUGS (16)
  1. RAMIPRIL. [Suspect]
     Active Substance: RAMIPRIL
     Dosage: 5 MILLIGRAM DAILY; 5 MG, 1?0?0?0
     Route: 048
  2. PANTOPRAZOL [Concomitant]
     Active Substance: PANTOPRAZOLE SODIUM
     Dosage: 80 MILLIGRAM DAILY; 40 MG, 1?0?1?0
     Route: 048
  3. NITRENDIPINE [Concomitant]
     Active Substance: NITRENDIPINE
     Dosage: 20 MILLIGRAM DAILY; 10 MG, 1?0?1?0
     Route: 048
  4. ROTIGOTINE [Concomitant]
     Active Substance: ROTIGOTINE
     Dosage: 4 MILLIGRAM DAILY; ONCE DAILY
     Route: 062
  5. BROMAZEPAM [Concomitant]
     Active Substance: BROMAZEPAM
     Dosage: .5 DOSAGE FORMS DAILY; 6 MG, 0?0?0.5?0
     Route: 048
  6. HAEMOPROCAN [Concomitant]
     Dosage: 100 MILLIGRAM DAILY; 100 MG, 1?0?0?0
     Route: 048
  7. SITAGLIPTIN [Concomitant]
     Active Substance: SITAGLIPTIN
     Dosage: .5 DOSAGE FORMS DAILY; 100 MG, 0.5?0?0?0
     Route: 048
  8. METFORMIN [Concomitant]
     Active Substance: METFORMIN HYDROCHLORIDE
     Dosage: 1000 MILLIGRAM DAILY; 500 MG, 1?0?1?0
     Route: 048
  9. BISOPROLOL [Concomitant]
     Active Substance: BISOPROLOL
     Dosage: 10 MILLIGRAM DAILY; 5 MG, 1?0?1?0
     Route: 048
  10. METAMIZOLE [Concomitant]
     Active Substance: METAMIZOLE
     Dosage: 500 MG, IF NECESSARY UP TO FOUR TIMES A DAY
     Route: 048
  11. BENSERAZIDE/LEVODOPA [Concomitant]
     Active Substance: BENSERAZIDE\LEVODOPA
     Dosage: 3 DOSAGE FORMS DAILY; 25|100 MG, 1?1?1?0
     Route: 048
  12. TAMSULOSIN [Concomitant]
     Active Substance: TAMSULOSIN
     Dosage: .4 MILLIGRAM DAILY;  0?0?1?0
     Route: 048
  13. LEVODOPA?CARBIDOPA [Concomitant]
     Active Substance: CARBIDOPA\LEVODOPA
     Dosage: 1 DOSAGE FORMS DAILY; 50|200 MG, 0?0?0?1
     Route: 048
  14. ALLOPURINOL. [Concomitant]
     Active Substance: ALLOPURINOL
     Dosage: 300 MILLIGRAM DAILY; 300 MG, 1?0?0?0
     Route: 048
  15. BENSERAZIDE/LEVODOPA [Concomitant]
     Active Substance: BENSERAZIDE\LEVODOPA
     Dosage: 1 DOSAGE FORMS DAILY; 25 | 100 MG, 1?0?0?0
     Route: 048
  16. FUROSEMID [Suspect]
     Active Substance: FUROSEMIDE
     Dosage: BY WEIGHT
     Route: 048

REACTIONS (2)
  - Weight increased [Unknown]
  - Oedema peripheral [Unknown]

NARRATIVE: CASE EVENT DATE: 20210609
